FAERS Safety Report 7682524-7 (Version None)
Quarter: 2011Q3

REPORT INFORMATION
  Report Type: 
  Country: None (occurrence: None)
  Receive Date: 20110810
  Receipt Date: 20110726
  Transmission Date: 20111222
  Serious: Yes (Other)
  Sender: FDA-Public Use
  Company Number: 2011MA010766

PATIENT
  Age: 66 Year
  Sex: Male

DRUGS (4)
  1. CETUXIMAB (CETUXIMAB) [Suspect]
     Indication: COLORECTAL CANCER METASTATIC
     Dosage: 500 MG/M**2;BIW;
  2. FLUOROURACIL [Suspect]
     Indication: COLORECTAL CANCER METASTATIC
  3. CALCIUM FOLINATE (CALCIUM FOLINATE) [Suspect]
     Indication: COLORECTAL CANCER METASTATIC
  4. IRINOTECAN HYDROCHLORIDE [Suspect]
     Indication: COLORECTAL CANCER METASTATIC

REACTIONS (1)
  - WOUND INFECTION [None]
